FAERS Safety Report 11336393 (Version 1)
Quarter: 2015Q3

REPORT INFORMATION
  Report Type: Spontaneous
  Country: US (occurrence: US)
  Receive Date: 20150804
  Receipt Date: 20150804
  Transmission Date: 20151125
  Serious: Yes (Other)
  Sender: FDA-Public Use
  Company Number: US-TEVA-582445USA

PATIENT
  Age: 53 Year
  Sex: Male
  Weight: 79.9 kg

DRUGS (11)
  1. PYRAZINAMIDE. [Concomitant]
     Active Substance: PYRAZINAMIDE
     Indication: TUBERCULOSIS
     Dosage: MONDAY THROUGH FRIDAY
  2. VITAMIN B6 [Concomitant]
     Active Substance: PYRIDOXINE HYDROCHLORIDE
     Indication: TUBERCULOSIS
     Dosage: DAILY MONDAY THROUGH FRIDAY
  3. VESANOID [Concomitant]
     Active Substance: TRETINOIN
     Indication: ACUTE PROMYELOCYTIC LEUKAEMIA
     Dosage: TWICE A DAY FOR TWO WEEKS ON AND TWO WEEKS OFF
  4. TRISENOX [Suspect]
     Active Substance: ARSENIC TRIOXIDE
     Indication: ACUTE PROMYELOCYTIC LEUKAEMIA
     Dosage: FOUR WEEKS ON AND TWO WEEKS OFF MONDAY THROUGH FRIDAY
     Dates: start: 201504
  5. ETHAMBUTOL [Concomitant]
     Active Substance: ETHAMBUTOL HYDROCHLORIDE
     Indication: TUBERCULOSIS
     Dosage: DAILY MONDAY THROUGH FRIDAY
  6. RIFAMPIN. [Concomitant]
     Active Substance: RIFAMPIN
     Indication: TUBERCULOSIS
     Dosage: DAILY MONDAY THROUGH FRIDAY
  7. MAGNESIUM [Concomitant]
     Active Substance: MAGNESIUM
     Indication: TUBERCULOSIS
  8. HYDROCODONE [Concomitant]
     Active Substance: HYDROCODONE
     Indication: PAIN
     Dosage: 5/325 AS NEEDED
  9. POTASSIUM [Concomitant]
     Active Substance: POTASSIUM
     Indication: TUBERCULOSIS
  10. INH [Concomitant]
     Active Substance: ISONIAZID
     Indication: TUBERCULOSIS
     Dosage: DAILY MONDAY THROUGH FRIDAY
  11. ALEVE [Concomitant]
     Active Substance: NAPROXEN SODIUM
     Indication: PAIN
     Dosage: AS NEEDED

REACTIONS (2)
  - Alanine aminotransferase increased [Not Recovered/Not Resolved]
  - Aspartate aminotransferase increased [Not Recovered/Not Resolved]

NARRATIVE: CASE EVENT DATE: 20150727
